FAERS Safety Report 7951270-4 (Version None)
Quarter: 2011Q4

REPORT INFORMATION
  Report Type: 
  Country: None (occurrence: None)
  Receive Date: 20111201
  Receipt Date: 20111121
  Transmission Date: 20120403
  Serious: Yes (Hospitalization)
  Sender: FDA-Public Use
  Company Number: US-JNJFOC-20111109989

PATIENT
  Sex: Male
  Weight: 51.3 kg

DRUGS (3)
  1. INFLIXIMAB, RECOMBINANT [Suspect]
     Indication: INFLAMMATORY BOWEL DISEASE
     Route: 042
     Dates: start: 20051008
  2. ANTIBIOTICS UNSPECIFIED [Concomitant]
     Indication: INFLAMMATORY BOWEL DISEASE
  3. INFLIXIMAB, RECOMBINANT [Suspect]
     Route: 042
     Dates: start: 20100413

REACTIONS (10)
  - FATIGUE [None]
  - ABDOMINAL PAIN [None]
  - INFLAMMATORY BOWEL DISEASE [None]
  - DIARRHOEA [None]
  - C-REACTIVE PROTEIN INCREASED [None]
  - POUCHITIS [None]
  - GASTROINTESTINAL SOUNDS ABNORMAL [None]
  - HYPOPHAGIA [None]
  - ABDOMINAL DISTENSION [None]
  - DISEASE PROGRESSION [None]
